FAERS Safety Report 8384309-5 (Version None)
Quarter: 2012Q2

REPORT INFORMATION
  Report Type: 
  Country: None (occurrence: None)
  Receive Date: 20120524
  Receipt Date: 20120517
  Transmission Date: 20120825
  Serious: Yes (Hospitalization)
  Sender: FDA-Public Use
  Company Number: MX-B.I. PHARMACEUTICALS,INC./RIDGEFIELD-2012-MX-00145MX

PATIENT
  Age: 66 Year
  Sex: Male
  Weight: 60 kg

DRUGS (7)
  1. AZATIOPRINA [Concomitant]
     Indication: IMMUNOSUPPRESSANT DRUG THERAPY
     Dosage: 75 MG
     Route: 048
     Dates: start: 19970101
  2. CYCLOSPORINE [Concomitant]
     Indication: IMMUNOSUPPRESSANT DRUG THERAPY
     Dosage: 100 MG
     Route: 048
     Dates: start: 19970101
  3. METOPROLOL [Concomitant]
     Indication: HYPERTENSION
     Dosage: 50 MG
     Route: 048
     Dates: start: 20020101
  4. DABIGATRAN ETEXILATE [Suspect]
     Indication: CEREBROVASCULAR ACCIDENT PROPHYLAXIS
     Dosage: 300 MG
     Route: 048
     Dates: start: 20120417, end: 20120427
  5. DABIGATRAN ETEXILATE [Suspect]
     Dosage: 110 MG
     Route: 048
     Dates: start: 20120428, end: 20120517
  6. AMIODARONA [Concomitant]
     Indication: ARRHYTHMIA
     Dosage: 200 MG
     Route: 048
     Dates: start: 20110901
  7. FLAGYL [Concomitant]
     Indication: CROHN'S DISEASE
     Dosage: 250 EVERY 3 DAYS
     Route: 048
     Dates: start: 20020101

REACTIONS (4)
  - GASTROINTESTINAL HAEMORRHAGE [None]
  - DEHYDRATION [None]
  - RENAL FAILURE [None]
  - MALAISE [None]
